FAERS Safety Report 21824894 (Version 2)
Quarter: 2023Q1

REPORT INFORMATION
  Report Type: Spontaneous
  Country: CA (occurrence: CA)
  Receive Date: 20230105
  Receipt Date: 20230106
  Transmission Date: 20230418
  Serious: Yes (Death, Hospitalization, Other)
  Sender: FDA-Public Use
  Company Number: CA-01054554290-2010SP045430

PATIENT
  Age: 63 Year
  Sex: Female

DRUGS (7)
  1. TEMODAL [Suspect]
     Active Substance: TEMOZOLOMIDE
     Indication: Glioblastoma multiforme
     Dosage: UNK
  2. TEMODAL [Suspect]
     Active Substance: TEMOZOLOMIDE
     Indication: Chemotherapy
  3. LEVOTHYROXINE SODIUM [Concomitant]
     Active Substance: LEVOTHYROXINE SODIUM
  4. LISINOPRIL [Concomitant]
     Active Substance: LISINOPRIL
  5. AMLODIPINE [Concomitant]
     Active Substance: AMLODIPINE BESYLATE
  6. RANITIDINE [Concomitant]
     Active Substance: RANITIDINE
  7. PRILOSEC [Concomitant]
     Active Substance: OMEPRAZOLE MAGNESIUM

REACTIONS (11)
  - Aplastic anaemia [Unknown]
  - Headache [Unknown]
  - Confusional state [Fatal]
  - Aphasia [Fatal]
  - Mucosal inflammation [Fatal]
  - Candida infection [Fatal]
  - Dysphagia [Fatal]
  - Pancytopenia [Fatal]
  - Urinary tract infection [Unknown]
  - Oral candidiasis [Unknown]
  - Pyrexia [Unknown]
